FAERS Safety Report 20066025 (Version 1)
Quarter: 2021Q4

REPORT INFORMATION
  Report Type: Spontaneous
  Country: BR (occurrence: BR)
  Receive Date: 20211114
  Receipt Date: 20211114
  Transmission Date: 20220304
  Serious: Yes (Other)
  Sender: FDA-Public Use
  Company Number: None

PATIENT
  Age: 53 Year
  Sex: Male
  Weight: 73 kg

DRUGS (2)
  1. REMERON [Suspect]
     Active Substance: MIRTAZAPINE
     Indication: Insomnia
     Dosage: 15MG, 1/2 COMP EVERY DAY AND THEN 1 COMP EVERY DAY
     Route: 048
     Dates: start: 20200714, end: 20200716
  2. REMERON [Suspect]
     Active Substance: MIRTAZAPINE
     Indication: Depression

REACTIONS (2)
  - Vision blurred [Not Recovered/Not Resolved]
  - Panic attack [Recovered/Resolved]

NARRATIVE: CASE EVENT DATE: 20200815
